FAERS Safety Report 24764563 (Version 2)
Quarter: 2025Q1

REPORT INFORMATION
  Report Type: Spontaneous
  Country: US (occurrence: US)
  Receive Date: 20241223
  Receipt Date: 20250113
  Transmission Date: 20250408
  Serious: Yes (Other)
  Sender: RIBON THERAPEUTICS
  Company Number: US-MELINTA THERAPEUTICS, LLC-US-MLNT-24-00579

PATIENT

DRUGS (42)
  1. METOPROLOL SUCCINATE [Suspect]
     Active Substance: METOPROLOL SUCCINATE
     Indication: Hypertension
     Dosage: 25 MILLIGRAM, Q12H
     Route: 048
     Dates: start: 20221015, end: 20221018
  2. METOPROLOL SUCCINATE [Suspect]
     Active Substance: METOPROLOL SUCCINATE
     Dosage: 25 MILLIGRAM, Q8H
     Route: 048
     Dates: start: 20221019, end: 20221119
  3. AMLODIPINE [Concomitant]
     Active Substance: AMLODIPINE BESYLATE
     Indication: Hypertension
     Dosage: 5 MILLIGRAM, QD
     Dates: start: 20221016, end: 20221104
  4. AMOXICLAV [AMOXICILLIN;CLAVULANIC ACID] [Concomitant]
     Indication: Antibiotic therapy
     Dosage: 875 MILLIGRAM, Q12H
     Route: 048
     Dates: start: 20221118, end: 20221119
  5. ASPIRIN [Concomitant]
     Active Substance: ASPIRIN
     Indication: Coronary artery disease
     Dosage: 81 MILLIGRAM, QD
     Route: 048
     Dates: start: 20221030, end: 20221119
  6. CLINDAMYCIN [Concomitant]
     Active Substance: CLINDAMYCIN
     Indication: Antibiotic therapy
     Dosage: 900 MILLIGRAM, Q8H
     Route: 042
     Dates: start: 20221101, end: 20221111
  7. DEXAMETHASONE [Concomitant]
     Active Substance: DEXAMETHASONE
     Indication: Inflammation
     Route: 042
     Dates: start: 20221005, end: 20221010
  8. ENOXAPARIN [Concomitant]
     Active Substance: ENOXAPARIN
     Indication: Embolism venous
     Dosage: 30 MILLIGRAM, QD
     Route: 058
     Dates: start: 20221004, end: 20221103
  9. ENOXAPARIN [Concomitant]
     Active Substance: ENOXAPARIN
     Dosage: 40 MILLIGRAM, QD
     Route: 058
     Dates: start: 20221103, end: 20221120
  10. FAMOTIDINE [Concomitant]
     Active Substance: FAMOTIDINE
     Indication: Gastrointestinal disorder
     Dosage: 20 MILLIGRAM, Q12H
     Route: 042
     Dates: start: 20221027, end: 20221120
  11. FLUCONAZOLE [Concomitant]
     Active Substance: FLUCONAZOLE
     Indication: Antifungal treatment
     Dosage: 150 MILLIGRAM, QD
     Route: 048
     Dates: start: 20221002, end: 20221006
  12. FLUCONAZOLE [Concomitant]
     Active Substance: FLUCONAZOLE
     Dosage: 400 MILLIGRAM, QD
     Route: 042
     Dates: start: 20221015, end: 20221018
  13. FUROSEMIDE [Concomitant]
     Active Substance: FUROSEMIDE
     Indication: Cardiac failure congestive
     Dosage: 20 MILLIGRAM, QD
     Route: 042
     Dates: start: 20221020, end: 20221120
  14. GENTAMICIN [Concomitant]
     Active Substance: GENTAMICIN
     Indication: Antibiotic therapy
     Dosage: 160 MILLIGRAM, QD
     Route: 042
     Dates: start: 20221104, end: 20221110
  15. GUAIFENESIN [Concomitant]
     Active Substance: GUAIFENESIN
     Indication: Cough
     Dosage: 200 MILLIGRAM, Q6H
     Route: 048
     Dates: start: 20221016, end: 20221019
  16. HYDROXYZINE [Concomitant]
     Active Substance: HYDROXYZINE HYDROCHLORIDE
     Indication: Sleep disorder
     Dosage: 100 MILLIGRAM, QD, HS (HORA SOMNI)
     Route: 048
     Dates: start: 20220930, end: 20221118
  17. IRON SUCROSE [Concomitant]
     Active Substance: IRON SUCROSE
     Indication: Anaemia
     Dosage: 100 MILLIGRAM, QD
     Route: 042
     Dates: start: 20221101, end: 20221114
  18. PROBIOTICS NOS [Concomitant]
     Active Substance: PROBIOTICS NOS
     Indication: Probiotic therapy
     Dosage: 1 CAP (CAPSULE), QD
     Route: 048
     Dates: start: 20221024, end: 20221119
  19. MEROPENEM [Concomitant]
     Active Substance: MEROPENEM
     Indication: Antibiotic therapy
     Dosage: 2 GRAM, Q8H
     Route: 042
     Dates: start: 20221013, end: 20221015
  20. MEROPENEM\VABORBACTAM [Concomitant]
     Active Substance: MEROPENEM\VABORBACTAM
     Indication: Antibiotic therapy
     Dosage: 2 GRAM, Q8H
     Route: 042
     Dates: start: 20221016, end: 20221024
  21. MEROPENEM\VABORBACTAM [Concomitant]
     Active Substance: MEROPENEM\VABORBACTAM
     Dosage: 4 GRAM, Q8H
     Route: 042
     Dates: start: 20221025, end: 20221103
  22. MICAFUNGIN [Concomitant]
     Active Substance: MICAFUNGIN SODIUM
     Indication: Antifungal treatment
     Dosage: 100 MILLIGRAM, QD
     Route: 042
     Dates: start: 20221101, end: 20221115
  23. MICAFUNGIN [Concomitant]
     Active Substance: MICAFUNGIN SODIUM
     Dosage: 100 MILLIGRAM, QD
     Route: 042
     Dates: start: 20221023, end: 20221025
  24. MIDODRINE [Concomitant]
     Active Substance: MIDODRINE
     Indication: Hypotension
     Dosage: 5 MILLIGRAM, TID
     Route: 048
     Dates: start: 20221105, end: 20221111
  25. VITAMINS NOS [Concomitant]
     Active Substance: VITAMINS
     Indication: Nutritional supplementation
     Dosage: 15 MILLILITER, QD
     Route: 048
     Dates: start: 20221001, end: 20221119
  26. PANTOPRAZOLE [Concomitant]
     Active Substance: PANTOPRAZOLE
     Indication: Gastrointestinal disorder
     Dosage: 40 MILLIGRAM, QD
     Route: 042
     Dates: start: 20221001, end: 20221026
  27. PIPERACILLIN AND TAZOBACTAM [Concomitant]
     Active Substance: PIPERACILLIN SODIUM\TAZOBACTAM SODIUM
     Indication: Antibiotic therapy
     Dosage: 3.375 GRAM, Q12H
     Route: 042
     Dates: start: 20221001, end: 20221012
  28. PREDNISONE [Concomitant]
     Active Substance: PREDNISONE
     Indication: Inflammation
     Dosage: 10 MILLIGRAM, QD
     Route: 048
     Dates: start: 20221011, end: 20221015
  29. PREDNISONE [Concomitant]
     Active Substance: PREDNISONE
     Dosage: 5 MILLIGRAM, QD
     Route: 048
     Dates: start: 20221016, end: 20221020
  30. PROPRANOLOL [Concomitant]
     Active Substance: PROPRANOLOL HYDROCHLORIDE
     Indication: Hypertension
     Dosage: 20 MILLIGRAM, BID
     Route: 048
     Dates: start: 20220930, end: 20221013
  31. TIZANIDINE [Concomitant]
     Active Substance: TIZANIDINE
     Indication: Muscle spasticity
     Dosage: 8 MILLIGRAM, Q8H
     Route: 048
     Dates: start: 20220930, end: 20221027
  32. TOBRAMYCIN [Concomitant]
     Active Substance: TOBRAMYCIN
     Indication: Antibiotic therapy
     Dosage: 300 MILLIGRAM, Q12H, NEB (NEBULIZATION)
     Route: 055
     Dates: start: 20221011, end: 20221021
  33. VANCOMYCIN [Concomitant]
     Active Substance: VANCOMYCIN
     Indication: Antibiotic therapy
     Dosage: 1 GRAM, QD
     Route: 042
     Dates: start: 20221001, end: 20221003
  34. VANCOMYCIN [Concomitant]
     Active Substance: VANCOMYCIN
     Dosage: 1 GRAM, Q12H
     Route: 042
     Dates: start: 20221004, end: 20221030
  35. VANCOMYCIN [Concomitant]
     Active Substance: VANCOMYCIN
     Dosage: 125 MILLIGRAM, Q6H
     Route: 042
     Dates: start: 20221011, end: 20221016
  36. VANCOMYCIN [Concomitant]
     Active Substance: VANCOMYCIN
     Dosage: 250 MILLIGRAM, Q6H
     Route: 042
     Dates: start: 20221019, end: 20221020
  37. MORPHINE [Concomitant]
     Active Substance: MORPHINE
     Indication: Pain
     Route: 042
  38. METOPROLOL [Concomitant]
     Active Substance: METOPROLOL
     Indication: Hypertension
     Route: 042
  39. ALPRAZOLAM [Concomitant]
     Active Substance: ALPRAZOLAM
     Indication: Anxiety
     Route: 048
  40. GUAIFENESIN AND CODEINE PHOSPHATE [Concomitant]
     Active Substance: CODEINE PHOSPHATE\GUAIFENESIN
     Indication: Cough
     Route: 048
  41. ACETAMINOPHEN [Concomitant]
     Active Substance: ACETAMINOPHEN
     Indication: Pain
     Route: 048
  42. ZOLPIDEM [Concomitant]
     Active Substance: ZOLPIDEM TARTRATE
     Indication: Sleep disorder
     Route: 048

REACTIONS (2)
  - Clostridium difficile infection [Unknown]
  - Inappropriate schedule of product administration [Unknown]
